FAERS Safety Report 9637193 (Version 2)
Quarter: 2013Q4

REPORT INFORMATION
  Report Type: Spontaneous
  Country: TW (occurrence: TW)
  Receive Date: 20131022
  Receipt Date: 20131108
  Transmission Date: 20140711
  Serious: Yes (Death, Hospitalization, Other)
  Sender: FDA-Public Use
  Company Number: TW-RANBAXY-2013RR-74217

PATIENT
  Age: 25 Year
  Sex: Female

DRUGS (1)
  1. METFORMIN [Suspect]
     Indication: SUICIDE ATTEMPT
     Dosage: LARGE DOSE
     Route: 065

REACTIONS (5)
  - Lactic acidosis [Not Recovered/Not Resolved]
  - Intentional overdose [Fatal]
  - Suicide attempt [Fatal]
  - Multi-organ failure [Fatal]
  - Hypotension [Not Recovered/Not Resolved]
